FAERS Safety Report 5013926-5 (Version None)
Quarter: 2006Q2

REPORT INFORMATION
  Report Type: 
  Country: None (occurrence: None)
  Receive Date: 20060525
  Receipt Date: 20060520
  Transmission Date: 20061013
  Serious: Yes (Other)
  Sender: FDA-Public Use
  Company Number: 222978

PATIENT
  Sex: Female

DRUGS (2)
  1. AVASTIN [Suspect]
     Indication: COLORECTAL CANCER
     Dosage: INTRAVENOUS
     Route: 042
  2. CONTRAST MEDIUM (CONTRAST DYE) [Concomitant]

REACTIONS (5)
  - CONFUSIONAL STATE [None]
  - INFUSION RELATED REACTION [None]
  - METASTASES TO CENTRAL NERVOUS SYSTEM [None]
  - NECROSIS [None]
  - RENAL FAILURE [None]
